FAERS Safety Report 4921276-8 (Version None)
Quarter: 2006Q1

REPORT INFORMATION
  Report Type: 
  Country: None (occurrence: None)
  Receive Date: 20060224
  Receipt Date: 20060216
  Transmission Date: 20060701
  Serious: Yes (Hospitalization, Other)
  Sender: FDA-Public Use
  Company Number: PHBS2006DE02605

PATIENT
  Age: 37 Year
  Sex: Female

DRUGS (1)
  1. CLOZAPINE [Suspect]
     Indication: ANXIETY DISORDER
     Dosage: 6-12.5 MG/DAY

REACTIONS (6)
  - ARRESTED LABOUR [None]
  - CAESAREAN SECTION [None]
  - DRUG EXPOSURE DURING PREGNANCY [None]
  - FOETAL GROWTH RETARDATION [None]
  - GESTATIONAL DIABETES [None]
  - OLIGOHYDRAMNIOS [None]
